FAERS Safety Report 12560651 (Version 1)
Quarter: 2016Q3

REPORT INFORMATION
  Report Type: Spontaneous
  Country: US (occurrence: US)
  Receive Date: 20160715
  Receipt Date: 20160715
  Transmission Date: 20161109
  Serious: No
  Sender: FDA-Public Use
  Company Number: US-JNJFOC-20160607726

PATIENT
  Age: 36 Year
  Sex: Female
  Weight: 63.5 kg

DRUGS (2)
  1. WOMENS ROGAINE UNSCENTED [Suspect]
     Active Substance: MINOXIDIL
     Indication: ALOPECIA
     Dosage: 2 DIME SIZES
     Route: 061
     Dates: start: 201605, end: 20160607
  2. WOMENS ROGAINE UNSCENTED [Suspect]
     Active Substance: MINOXIDIL
     Route: 061

REACTIONS (6)
  - Wrong technique in product usage process [Recovered/Resolved]
  - Product formulation issue [Unknown]
  - Drug administered at inappropriate site [Recovered/Resolved]
  - Polymenorrhoea [Recovered/Resolved]
  - Dysmenorrhoea [Recovered/Resolved]
  - Menorrhagia [Recovered/Resolved]

NARRATIVE: CASE EVENT DATE: 2016
